FAERS Safety Report 6141576-6 (Version None)
Quarter: 2009Q2

REPORT INFORMATION
  Report Type: 
  Country: None (occurrence: None)
  Receive Date: 20090402
  Receipt Date: 20090324
  Transmission Date: 20091009
  Serious: Yes (Other)
  Sender: FDA-Public Use
  Company Number: A0772813A

PATIENT
  Age: 7 Year
  Sex: Male

DRUGS (3)
  1. LAMICTAL [Suspect]
     Dosage: 25MG PER DAY
     Route: 048
     Dates: start: 20090223, end: 20090309
  2. DAYTRANA [Concomitant]
     Indication: ATTENTION DEFICIT/HYPERACTIVITY DISORDER
     Dosage: 10MG PER DAY
     Route: 062
     Dates: start: 20090223, end: 20090309
  3. CLONIDINE [Concomitant]
     Dosage: .1MG AT NIGHT
     Route: 048
     Dates: start: 20070227, end: 20090309

REACTIONS (4)
  - OROPHARYNGEAL BLISTERING [None]
  - PYREXIA [None]
  - RASH [None]
  - RASH PAPULAR [None]
